FAERS Safety Report 9318710 (Version 2)
Quarter: 2013Q3

REPORT INFORMATION
  Report Type: Spontaneous
  Country: IT (occurrence: IT)
  Receive Date: 20130530
  Receipt Date: 20130712
  Transmission Date: 20140515
  Serious: Yes (Other)
  Sender: FDA-Public Use
  Company Number: IT-PFIZER INC-2013116074

PATIENT
  Age: 11 Year
  Sex: Male

DRUGS (3)
  1. RISPERIDONE [Suspect]
     Indication: PSYCHOTIC DISORDER
     Dosage: TITRATED UP TO 0.50 MG
     Route: 065
  2. SERTRALINE HYDROCHLORIDE [Concomitant]
     Dosage: SLOW TITRATION UP TO 100 MG
     Route: 065
  3. VALPROIC ACID [Concomitant]
     Dosage: UP TO 500 MG
     Route: 065

REACTIONS (4)
  - Dyslipidaemia [Recovered/Resolved]
  - Weight increased [Recovered/Resolved]
  - Blood cholesterol increased [Recovered/Resolved]
  - Blood triglycerides increased [Recovered/Resolved]
